FAERS Safety Report 8884033 (Version 2)
Quarter: 2012Q4

REPORT INFORMATION
  Report Type: 
  Country: JP (occurrence: JP)
  Receive Date: 20121102
  Receipt Date: 20121206
  Transmission Date: 20130627
  Serious: Yes (Hospitalization, Other)
  Sender: FDA-Public Use
  Company Number: JP-ROCHE-1151464

PATIENT
  Age: 87 Year
  Sex: Male

DRUGS (3)
  1. LUCENTIS [Suspect]
     Indication: AGE-RELATED MACULAR DEGENERATION
     Route: 050
     Dates: start: 20120312
  2. LUCENTIS [Suspect]
     Route: 050
     Dates: start: 20120419
  3. LUCENTIS [Suspect]
     Route: 050
     Dates: start: 20120924

REACTIONS (1)
  - Cerebral infarction [Recovered/Resolved]
